FAERS Safety Report 18211911 (Version 5)
Quarter: 2020Q4

REPORT INFORMATION
  Report Type: Report from Study
  Country: NL (occurrence: NL)
  Receive Date: 20200831
  Receipt Date: 20201118
  Transmission Date: 20210113
  Serious: Yes (Hospitalization, Other)
  Sender: FDA-Public Use
  Company Number: NL-GLAXOSMITHKLINE-NL2020GSK167126

PATIENT
  Age: 68 Year
  Sex: Female
  Weight: 72.1 kg

DRUGS (12)
  1. NIRAPARIB [Suspect]
     Active Substance: NIRAPARIB
     Dosage: UNK
     Dates: start: 20200908, end: 20200908
  2. DOSTARLIMAB [Suspect]
     Active Substance: DOSTARLIMAB
     Indication: OVARIAN CANCER
     Dosage: 1000 MG
     Dates: start: 20200206, end: 20200206
  3. PACLITAXEL. [Suspect]
     Active Substance: PACLITAXEL
     Dosage: 300 MG
     Route: 042
     Dates: start: 20200604, end: 20200604
  4. BEVACIZUMAB. [Suspect]
     Active Substance: BEVACIZUMAB
     Indication: OVARIAN CANCER
     Dosage: UNK
     Route: 042
  5. DOSTARLIMAB [Suspect]
     Active Substance: DOSTARLIMAB
     Dosage: 1000 MG
     Dates: start: 20200807, end: 20200807
  6. CARBOPLATIN. [Suspect]
     Active Substance: CARBOPLATIN
     Indication: OVARIAN CANCER
     Dosage: 560 MG
     Route: 042
     Dates: start: 20200117, end: 20200117
  7. CARBOPLATIN. [Suspect]
     Active Substance: CARBOPLATIN
     Dosage: 560 MG
     Route: 042
     Dates: start: 20200604, end: 20200604
  8. NIRAPARIB [Suspect]
     Active Substance: NIRAPARIB
     Indication: OVARIAN CANCER
     Dosage: 200 MG
     Dates: start: 20200716, end: 20200818
  9. PACLITAXEL. [Suspect]
     Active Substance: PACLITAXEL
     Indication: OVARIAN CANCER
     Dosage: 300 MG
     Route: 042
     Dates: start: 20200117, end: 20200117
  10. DOSTARLIMAB [Suspect]
     Active Substance: DOSTARLIMAB
     Dosage: UNK
     Dates: start: 20200904, end: 20200904
  11. CISPLATIN. [Concomitant]
     Active Substance: CISPLATIN
     Indication: OVARIAN CANCER
     Dosage: UNK
     Route: 042
  12. DOCETAXEL. [Concomitant]
     Active Substance: DOCETAXEL
     Indication: OVARIAN CANCER
     Dosage: UNK
     Route: 042

REACTIONS (1)
  - Autoimmune hepatitis [Recovered/Resolved with Sequelae]

NARRATIVE: CASE EVENT DATE: 20200819
